FAERS Safety Report 10161582 (Version 1)
Quarter: 2014Q2

REPORT INFORMATION
  Report Type: Spontaneous
  Country: IL (occurrence: IL)
  Receive Date: 20140509
  Receipt Date: 20140509
  Transmission Date: 20141212
  Serious: Yes (Other)
  Sender: FDA-Public Use
  Company Number: IL-AMGEN INC.-ISRSP2014032895

PATIENT
  Age: 41 Year
  Sex: Male

DRUGS (3)
  1. ENBREL [Suspect]
     Indication: RHEUMATOID ARTHRITIS
     Dosage: UNK, QWK
     Route: 065
     Dates: start: 20140425
  2. COUMADIN                           /00014802/ [Concomitant]
     Dosage: UNK
  3. ELTROXIN [Concomitant]
     Dosage: UNK

REACTIONS (1)
  - Cardiac valve disease [Recovering/Resolving]
